FAERS Safety Report 25602758 (Version 1)
Quarter: 2025Q3

REPORT INFORMATION
  Report Type: Spontaneous
  Country: GB (occurrence: GB)
  Receive Date: 20250724
  Receipt Date: 20250724
  Transmission Date: 20251021
  Serious: Yes (Other)
  Sender: GILEAD
  Company Number: GB-MHRA-36180759

PATIENT
  Age: 60 Year
  Sex: Male

DRUGS (2)
  1. TRUVADA [Suspect]
     Active Substance: EMTRICITABINE\TENOFOVIR DISOPROXIL FUMARATE
     Indication: Prophylaxis against HIV infection
     Route: 065
     Dates: start: 20250521
  2. RALTEGRAVIR [Suspect]
     Active Substance: RALTEGRAVIR
     Indication: Prophylaxis against HIV infection
     Route: 065
     Dates: start: 20250521

REACTIONS (6)
  - Nephropathy toxic [Unknown]
  - Renal impairment [Unknown]
  - Glomerular filtration rate decreased [Unknown]
  - Acute kidney injury [Unknown]
  - Urine protein/creatinine ratio abnormal [Unknown]
  - Urine albumin/creatinine ratio abnormal [Unknown]

NARRATIVE: CASE EVENT DATE: 20250527
